FAERS Safety Report 17374817 (Version 1)
Quarter: 2020Q1

REPORT INFORMATION
  Report Type: Spontaneous
  Country: US (occurrence: US)
  Receive Date: 20200204
  Receipt Date: 20200204
  Transmission Date: 20200409
  Serious: Yes (Death, Life-Threatening)
  Sender: FDA-Public Use
  Company Number: None

PATIENT
  Age: 82 Year
  Sex: Male

DRUGS (1)
  1. HEPARIN [Suspect]
     Active Substance: HEPARIN SODIUM

REACTIONS (5)
  - Drug intolerance [None]
  - Troponin increased [None]
  - Atrial fibrillation [None]
  - Chest pain [None]
  - Mental status changes [None]

NARRATIVE: CASE EVENT DATE: 20191017
